FAERS Safety Report 9715345 (Version 2)
Quarter: 2013Q4

REPORT INFORMATION
  Report Type: Report from Study
  Country: US (occurrence: US)
  Receive Date: 20131127
  Receipt Date: 20131206
  Transmission Date: 20140711
  Serious: Yes (Death)
  Sender: FDA-Public Use
  Company Number: US-ROCHE-1307519

PATIENT
  Sex: Male

DRUGS (2)
  1. VALCYTE [Suspect]
     Indication: CYTOMEGALOVIRUS TEST POSITIVE
     Dosage: 2 TABS
     Route: 048
     Dates: start: 20130424, end: 20130506
  2. VALCYTE [Suspect]
     Route: 048
     Dates: start: 20130215, end: 20130219

REACTIONS (1)
  - Pseudomonal sepsis [Fatal]
